FAERS Safety Report 16065144 (Version 5)
Quarter: 2019Q2

REPORT INFORMATION
  Report Type: Spontaneous
  Country: JP (occurrence: JP)
  Receive Date: 20190313
  Receipt Date: 20190524
  Transmission Date: 20190711
  Serious: Yes (Other)
  Sender: FDA-Public Use
  Company Number: JP-AMGEN-JPNSP2019038131

PATIENT
  Age: 59 Year
  Sex: Female

DRUGS (6)
  1. FLUOROURACIL. [Concomitant]
     Active Substance: FLUOROURACIL
     Indication: BREAST CANCER
     Dosage: 749 MILLIGRAM, Q3WK
     Route: 041
     Dates: start: 20190206, end: 20190410
  2. FILGRASTIM [Concomitant]
     Active Substance: FILGRASTIM
     Indication: PRODUCT USED FOR UNKNOWN INDICATION
     Dosage: UNK UG
     Route: 041
     Dates: start: 20190206
  3. FILGRASTIM [Concomitant]
     Active Substance: FILGRASTIM
     Dosage: 75 MICROGRAM
     Route: 041
     Dates: start: 20190220
  4. G-LASTA [Suspect]
     Active Substance: PEGFILGRASTIM
     Indication: COLONY STIMULATING FACTOR THERAPY
     Dosage: 3.6 MILLIGRAM, SINGLE
     Route: 058
     Dates: start: 20190301, end: 20190301
  5. EPIRUBICIN [Concomitant]
     Active Substance: EPIRUBICIN
     Indication: BREAST CANCER
     Dosage: 150 MILLIGRAM, Q3WK
     Route: 041
     Dates: start: 20190206, end: 20190410
  6. ENDOXAN [CYCLOPHOSPHAMIDE] [Concomitant]
     Active Substance: CYCLOPHOSPHAMIDE
     Indication: BREAST CANCER
     Dosage: 749 MILLIGRAM, Q3WK
     Route: 041
     Dates: start: 20190206, end: 20190410

REACTIONS (4)
  - Oedema peripheral [Recovered/Resolved]
  - Urinary retention [Recovered/Resolved]
  - Colony stimulating factor therapy [Unknown]
  - Liver disorder [Recovered/Resolved]

NARRATIVE: CASE EVENT DATE: 20190303
